FAERS Safety Report 6526215-4 (Version None)
Quarter: 2009Q4

REPORT INFORMATION
  Report Type: 
  Country: None (occurrence: None)
  Receive Date: 20091228
  Receipt Date: 20091218
  Transmission Date: 20100525
  Serious: Yes (Hospitalization)
  Sender: FDA-Public Use
  Company Number: 235673K09USA

PATIENT
  Age: 51 Year
  Sex: Female

DRUGS (6)
  1. REBIF [Suspect]
     Indication: MULTIPLE SCLEROSIS
     Dosage: 44 MCG, 3 IN 1 WEEKS, SUBCUTANEOUS
     Route: 058
     Dates: start: 20070119
  2. IMITREX [Concomitant]
  3. EFFEXOR [Concomitant]
  4. VITAMIN D [Concomitant]
  5. CALCIUM (CALCIUM-SANDOZ [Concomitant]
  6. MEGAVITAMIN (ALL OTHER THERAPEUTIC PRODUCTS) [Concomitant]

REACTIONS (4)
  - BREAST CANCER FEMALE [None]
  - MASS [None]
  - METASTASES TO LYMPH NODES [None]
  - SKIN LESION [None]
